FAERS Safety Report 4784209-3 (Version None)
Quarter: 2005Q3

REPORT INFORMATION
  Report Type: 
  Country: None (occurrence: None)
  Receive Date: 20050930
  Receipt Date: 20050915
  Transmission Date: 20060218
  Serious: Yes (Death)
  Sender: FDA-Public Use
  Company Number: GR-RB-2043-2005

PATIENT
  Age: 53 Year
  Sex: Male

DRUGS (2)
  1. BUPRENORPHINE HCL [Suspect]
     Indication: DRUG DEPENDENCE
     Dosage: 3 DOSES OF 18 MG WEEKLY
     Route: 060
     Dates: start: 20040308, end: 20050902
  2. MEDICINALPRODUCT NOT SPECIFIED BY SENDER [Concomitant]
     Indication: BACK PAIN
     Dosage: DOSE UNKNOWN
     Route: 065

REACTIONS (4)
  - CARDIOMEGALY [None]
  - FALL [None]
  - INTRACRANIAL INJURY [None]
  - SUDDEN DEATH [None]
